FAERS Safety Report 9585982 (Version 2)
Quarter: 2013Q4

REPORT INFORMATION
  Report Type: Spontaneous
  Country: US (occurrence: None)
  Receive Date: 20131001
  Receipt Date: 20131008
  Transmission Date: 20140711
  Serious: Yes (Death)
  Sender: FDA-Public Use
  Company Number: 2013-US-001134

PATIENT
  Age: 39 Year
  Sex: Female

DRUGS (7)
  1. FAZACLO [Suspect]
     Route: 048
     Dates: start: 20130530
  2. SEROQUEL (QUETIAPINE FUMARATE) [Concomitant]
  3. COGENTIN (BENZATROPINE MESILATE) [Concomitant]
  4. DEPAKOTE (VALPROATE SEMISODIUM) [Concomitant]
  5. ATIVAN (LORAZEPAM) [Concomitant]
  6. ZYPREXA (OLANZAPINE) [Concomitant]
  7. CATAPRES (CLONIDINE HYDROCHLORIDE) [Concomitant]

REACTIONS (1)
  - Diarrhoea [None]
